FAERS Safety Report 9346226 (Version 2)
Quarter: 2013Q3

REPORT INFORMATION
  Report Type: Spontaneous
  Country: US (occurrence: US)
  Receive Date: 20130613
  Receipt Date: 20130827
  Transmission Date: 20140515
  Serious: No
  Sender: FDA-Public Use
  Company Number: US-BIOGENIDEC-2013BI052558

PATIENT
  Age: 37 Year
  Sex: Male

DRUGS (1)
  1. TYSABRI [Suspect]
     Indication: MULTIPLE SCLEROSIS
     Route: 042
     Dates: start: 20130412

REACTIONS (4)
  - Eye disorder [Recovered/Resolved]
  - Multiple sclerosis relapse [Recovered/Resolved]
  - Infusion site pain [Not Recovered/Not Resolved]
  - Malaise [Recovered/Resolved]
